APPROVED DRUG PRODUCT: METOCLOPRAMIDE HYDROCHLORIDE
Active Ingredient: METOCLOPRAMIDE HYDROCHLORIDE
Strength: EQ 5MG BASE
Dosage Form/Route: TABLET;ORAL
Application: A071536 | Product #002
Applicant: SUN PHARMACEUTICAL INDUSTRIES INC
Approved: Jan 16, 1997 | RLD: No | RS: No | Type: DISCN